FAERS Safety Report 6040560-0 (Version None)
Quarter: 2009Q1

REPORT INFORMATION
  Report Type: 
  Country: None (occurrence: None)
  Receive Date: 20090116
  Receipt Date: 20080403
  Transmission Date: 20090719
  Serious: No
  Sender: FDA-Public Use
  Company Number: US-BRISTOL-MYERS SQUIBB COMPANY-14139349

PATIENT

DRUGS (3)
  1. ABILIFY [Suspect]
  2. ADDERALL XR 20 [Interacting]
  3. VYVANSE [Interacting]

REACTIONS (3)
  - AGITATION [None]
  - ANGER [None]
  - DRUG INTERACTION [None]
